FAERS Safety Report 22984349 (Version 2)
Quarter: 2024Q1

REPORT INFORMATION
  Report Type: Report from Study
  Country: PR (occurrence: PR)
  Receive Date: 20230926
  Receipt Date: 20240328
  Transmission Date: 20240410
  Serious: Yes (Other)
  Sender: FDA-Public Use
  Company Number: PR-ABBVIE-5419149

PATIENT
  Sex: Male
  Weight: 110 kg

DRUGS (7)
  1. HUMIRA [Suspect]
     Active Substance: ADALIMUMAB
     Indication: Crohn^s disease
     Dosage: FORM STRENGTH: 40 MILLIGRAM
     Route: 058
  2. HUMIRA [Suspect]
     Active Substance: ADALIMUMAB
     Dosage: FORM STRENGTH: 40 MILLIGRAM
     Route: 058
     Dates: start: 20110328
  3. Covid-19 vaccine [Concomitant]
     Indication: COVID-19 immunisation
     Dosage: 1ST DOSE
  4. Covid-19 vaccine [Concomitant]
     Indication: COVID-19 immunisation
     Dosage: 2ND DOSE
  5. Covid-19 vaccine [Concomitant]
     Indication: COVID-19 immunisation
     Dosage: 3RD DOSE
  6. Covid-19 vaccine [Concomitant]
     Indication: COVID-19 immunisation
     Dosage: 4TH DOSE
  7. Covid-19 vaccine [Concomitant]
     Indication: COVID-19 immunisation
     Dosage: 5TH DOSE

REACTIONS (1)
  - Intestinal obstruction [Recovered/Resolved]
